FAERS Safety Report 12646976 (Version 1)
Quarter: 2016Q3

REPORT INFORMATION
  Report Type: Spontaneous
  Country: US (occurrence: None)
  Receive Date: 20160811
  Receipt Date: 20160811
  Transmission Date: 20161109
  Serious: Yes (Other)
  Sender: FDA-Public Use
  Company Number: None

PATIENT
  Age: 57 Year
  Sex: Female
  Weight: 86.18 kg

DRUGS (16)
  1. HYDROCORTISONE. [Concomitant]
     Active Substance: HYDROCORTISONE
  2. MILK THISTLE [Concomitant]
     Active Substance: MILK THISTLE
  3. MEN^S ONE A DAY [Concomitant]
  4. TRIPLE OMEGA [Concomitant]
  5. CRESTOR [Concomitant]
     Active Substance: ROSUVASTATIN CALCIUM
  6. GLUCOSAMIINE [Concomitant]
  7. SERTRALINE [Concomitant]
     Active Substance: SERTRALINE HYDROCHLORIDE
  8. COENZYME Q10 [Concomitant]
     Active Substance: UBIDECARENONE
  9. METFORMIN [Concomitant]
     Active Substance: METFORMIN HYDROCHLORIDE
  10. KRILL OIL [Concomitant]
     Active Substance: DIETARY SUPPLEMENT
  11. HYDROCORT TAB 10MG LINEAGE TH [Suspect]
     Active Substance: HYDROCORTISONE SODIUM SUCCINATE
  12. LEVOTHYROXINE. [Concomitant]
     Active Substance: LEVOTHYROXINE
  13. ELLLURA [Concomitant]
  14. MAGNESIUM [Concomitant]
     Active Substance: MAGNESIUM
  15. FLUDROCORTISONE ACETATE. [Concomitant]
     Active Substance: FLUDROCORTISONE ACETATE
  16. BYDUREON [Concomitant]
     Active Substance: EXENATIDE

REACTIONS (4)
  - Product substitution issue [None]
  - Musculoskeletal pain [None]
  - Back pain [None]
  - Appetite disorder [None]

NARRATIVE: CASE EVENT DATE: 20160810
